FAERS Safety Report 6121735-9 (Version None)
Quarter: 2009Q1

REPORT INFORMATION
  Report Type: 
  Country: None (occurrence: None)
  Receive Date: 20090313
  Receipt Date: 20090313
  Transmission Date: 20090719
  Serious: Yes (Death)
  Sender: FDA-Public Use
  Company Number: None

PATIENT
  Age: 22 Year
  Sex: Female
  Weight: 52.9 kg

DRUGS (4)
  1. ALUVIA (LOPINAVIR / RITONAVIR) [Suspect]
     Indication: HIV INFECTION
     Dosage: 400/100 MG BID ORAL
     Route: 048
     Dates: start: 20061003, end: 20070424
  2. COMBIVIR [Suspect]
     Indication: HIV INFECTION
     Dosage: 300/150 MG BID ORAL
     Route: 048
     Dates: start: 20061003, end: 20070424
  3. VIRAMUNE [Concomitant]
  4. COMBIVIR [Concomitant]

REACTIONS (12)
  - BLOOD ALBUMIN DECREASED [None]
  - BLOOD AMYLASE INCREASED [None]
  - BLOOD CALCIUM DECREASED [None]
  - BLOOD CREATINE INCREASED [None]
  - BLOOD SODIUM DECREASED [None]
  - DIARRHOEA [None]
  - DRUG EXPOSURE DURING PREGNANCY [None]
  - GENERAL PHYSICAL HEALTH DETERIORATION [None]
  - HEPATIC FAILURE [None]
  - PROTEIN TOTAL DECREASED [None]
  - RENAL FAILURE ACUTE [None]
  - VOMITING [None]
